FAERS Safety Report 9617370 (Version 1)
Quarter: 2013Q4

REPORT INFORMATION
  Report Type: Spontaneous
  Country: US (occurrence: US)
  Receive Date: 20131011
  Receipt Date: 20131011
  Transmission Date: 20140711
  Serious: Yes (Other)
  Sender: FDA-Public Use
  Company Number: US-LUNDBECK-DKLU1094105

PATIENT
  Sex: Female

DRUGS (1)
  1. ONFI [Suspect]
     Indication: PRODUCT USED FOR UNKNOWN INDICATION

REACTIONS (5)
  - Brain operation [Unknown]
  - Weight increased [Unknown]
  - Agitation [Unknown]
  - Gait disturbance [Unknown]
  - Sedation [Unknown]
